FAERS Safety Report 4355085-8 (Version None)
Quarter: 2004Q2

REPORT INFORMATION
  Report Type: 
  Country: None (occurrence: None)
  Receive Date: 20040504
  Receipt Date: 20040420
  Transmission Date: 20050107
  Serious: Yes (Death)
  Sender: FDA-Public Use
  Company Number: 200410204BYL

PATIENT
  Age: 65 Year
  Sex: Female
  Weight: 27.5 kg

DRUGS (12)
  1. CIPROFLOXACIN [Suspect]
     Indication: PNEUMONIA
     Dosage: 200 MG, BID, INTRAVENOUS DRIP
     Route: 041
     Dates: start: 20040409, end: 20040410
  2. RIFADIN [Suspect]
     Indication: MYCOBACTERIAL INFECTION
     Dosage: 450 MG, QD, ORAL
     Route: 048
     Dates: start: 20040325, end: 20040410
  3. CLARITH [Concomitant]
  4. EBUTOL [Concomitant]
  5. RYTHMODAN [Concomitant]
  6. CLEANAL [Concomitant]
  7. NORVASC [Concomitant]
  8. MAG-LAX [Concomitant]
  9. MARZULENE [Concomitant]
  10. OM [Concomitant]
  11. MODACIN [Concomitant]
  12. CARBENIN [Concomitant]

REACTIONS (8)
  - ARRHYTHMIA [None]
  - BLOOD PRESSURE SYSTOLIC DECREASED [None]
  - BREATH SOUNDS DECREASED [None]
  - COOMBS DIRECT TEST POSITIVE [None]
  - DEPRESSED LEVEL OF CONSCIOUSNESS [None]
  - HAEMOLYTIC ANAEMIA [None]
  - HYPERTENSION [None]
  - RESPIRATORY FAILURE [None]
